FAERS Safety Report 5429433-1 (Version None)
Quarter: 2007Q3

REPORT INFORMATION
  Report Type: 
  Country: None (occurrence: None)
  Receive Date: 20070829
  Receipt Date: 20070821
  Transmission Date: 20080115
  Serious: Yes (Hospitalization, Other)
  Sender: FDA-Public Use
  Company Number: US-ROCHE-512705

PATIENT
  Sex: Male

DRUGS (4)
  1. FUZEON [Suspect]
     Indication: DRUG USE FOR UNKNOWN INDICATION
     Route: 065
     Dates: start: 20070401
  2. EPZICOM [Concomitant]
     Dates: start: 20070401
  3. UNSPECIFIED DRUG [Concomitant]
     Dosage: REPORTED AS RALTEGRAVIR.
     Dates: start: 20070401
  4. UNSPECIFIED DRUG [Concomitant]
     Dosage: REPORTED AS DAVURAVIR.
     Dates: start: 20070401

REACTIONS (2)
  - MILLER FISHER SYNDROME [None]
  - PNEUMONIA [None]
